FAERS Safety Report 14408581 (Version 2)
Quarter: 2018Q1

REPORT INFORMATION
  Report Type: Spontaneous
  Country: CH (occurrence: CH)
  Receive Date: 20180118
  Receipt Date: 20180130
  Transmission Date: 20180509
  Serious: Yes (Death, Other)
  Sender: FDA-Public Use
  Company Number: CH-OTSUKA-2018_001172

PATIENT
  Age: 39 Year
  Sex: Male
  Weight: 88 kg

DRUGS (10)
  1. JINARC [Suspect]
     Active Substance: TOLVAPTAN
     Dosage: 45 MG, QD (IN THE MORNING)
     Route: 048
     Dates: start: 20170829
  2. VASCORD [Concomitant]
     Indication: HYPERTENSION
  3. JINARC [Suspect]
     Active Substance: TOLVAPTAN
     Dosage: 15 MG, QD (IN THE EVENING)
     Route: 048
     Dates: start: 20170505, end: 20170822
  4. DAFALGAN [Concomitant]
     Active Substance: ACETAMINOPHEN
     Indication: FLANK PAIN
     Dosage: 500 MG UPON NEED
     Route: 048
     Dates: start: 20170201
  5. JINARC [Suspect]
     Active Substance: TOLVAPTAN
     Indication: CONGENITAL CYSTIC KIDNEY DISEASE
     Dosage: 45 MG, QD (IN THE MORNING)
     Route: 048
     Dates: start: 20170505, end: 20170822
  6. JINARC [Suspect]
     Active Substance: TOLVAPTAN
     Dosage: 15 MG, QD (IN EVENING)
     Route: 048
     Dates: start: 20170519
  7. NOVALGIN (METAMIZOLE SODIUM) [Concomitant]
     Active Substance: METAMIZOLE SODIUM
     Indication: PAIN
     Dosage: 500 MG UPON NEED, ORAL ADMINISTRATION
     Route: 048
     Dates: start: 20170201
  8. JINARC [Suspect]
     Active Substance: TOLVAPTAN
     Dosage: 15 MG, QD (IN THE EVENING)
     Route: 048
     Dates: start: 20170829
  9. JINARC [Suspect]
     Active Substance: TOLVAPTAN
     Dosage: 45 MG, QD (IN MORNING)
     Route: 048
     Dates: start: 20170519
  10. VASCORD [Concomitant]
     Indication: HYPERTONIA
     Dosage: 1-0-0-0; 40MG/10MG, ORAL ADMINISTRATION
     Route: 048
     Dates: start: 20170201

REACTIONS (2)
  - Polyuria [Unknown]
  - Sudden death [Fatal]

NARRATIVE: CASE EVENT DATE: 2017
